FAERS Safety Report 13013447 (Version 1)
Quarter: 2016Q4

REPORT INFORMATION
  Report Type: Report from Study
  Country: BR (occurrence: BR)
  Receive Date: 20161209
  Receipt Date: 20161209
  Transmission Date: 20170207
  Serious: Yes (Life-Threatening, Hospitalization, Other)
  Sender: FDA-Public Use
  Company Number: BR-JNJFOC-20161012427

PATIENT
  Age: 70 Year
  Sex: Male

DRUGS (7)
  1. STELARA [Suspect]
     Active Substance: USTEKINUMAB
     Indication: PSORIASIS
     Route: 058
     Dates: start: 20161005
  2. STELARA [Suspect]
     Active Substance: USTEKINUMAB
     Indication: PSORIASIS
     Route: 058
     Dates: start: 20160910
  3. CICLOSPORIN [Concomitant]
     Active Substance: CYCLOSPORINE
     Route: 065
  4. GLICLAZIDE [Concomitant]
     Active Substance: GLICLAZIDE
     Route: 065
  5. ENALAPRIL [Concomitant]
     Active Substance: ENALAPRIL
     Route: 065
  6. ACITRETIN. [Concomitant]
     Active Substance: ACITRETIN
     Route: 065
  7. METFORMIN [Concomitant]
     Active Substance: METFORMIN HYDROCHLORIDE
     Route: 065

REACTIONS (9)
  - Cardiac disorder [Unknown]
  - Anaphylactic shock [Unknown]
  - Weight decreased [Unknown]
  - Coma [Unknown]
  - Depression [Unknown]
  - Psoriasis [Not Recovered/Not Resolved]
  - Hypertension [Unknown]
  - Chills [Not Recovered/Not Resolved]
  - Oedema [Unknown]

NARRATIVE: CASE EVENT DATE: 201609
